FAERS Safety Report 7091272-6 (Version None)
Quarter: 2010Q4

REPORT INFORMATION
  Report Type: 
  Country: None (occurrence: None)
  Receive Date: 20101109
  Receipt Date: 20101105
  Transmission Date: 20110411
  Serious: Yes (Death, Other)
  Sender: FDA-Public Use
  Company Number: BR-ASTRAZENECA-2010SE52726

PATIENT
  Age: 271 Month
  Sex: Female
  Weight: 80 kg

DRUGS (2)
  1. SEROQUEL [Suspect]
     Indication: BIPOLAR I DISORDER
     Route: 048
     Dates: end: 20080101
  2. SEROQUEL [Suspect]
     Dosage: 28 TABLETS ONCE, 200 MG STRENGTH
     Route: 048
     Dates: start: 20101001, end: 20101001

REACTIONS (5)
  - CARDIAC FAILURE CONGESTIVE [None]
  - COMPLETED SUICIDE [None]
  - INTENTIONAL OVERDOSE [None]
  - PULMONARY OEDEMA [None]
  - SOMNOLENCE [None]
